FAERS Safety Report 4914563-0 (Version None)
Quarter: 2006Q1

REPORT INFORMATION
  Report Type: 
  Country: None (occurrence: None)
  Receive Date: 20060216
  Receipt Date: 20060202
  Transmission Date: 20060701
  Serious: Yes (Hospitalization)
  Sender: FDA-Public Use
  Company Number: US-MERCK-0602USA01629

PATIENT
  Age: 61 Year
  Sex: Female

DRUGS (5)
  1. VIOXX [Suspect]
     Route: 048
     Dates: end: 20030101
  2. LOZOL [Concomitant]
     Route: 065
  3. ATENOLOL [Concomitant]
     Route: 065
  4. PREMARIN [Concomitant]
     Route: 065
  5. VICODIN [Concomitant]
     Route: 065

REACTIONS (22)
  - ABDOMINAL PAIN UPPER [None]
  - ARTERIOSCLEROSIS CORONARY ARTERY [None]
  - BUTTOCK PAIN [None]
  - CARDIAC FAILURE CONGESTIVE [None]
  - CHEST PAIN [None]
  - CORONARY ARTERY DISEASE [None]
  - DILATATION ATRIAL [None]
  - DRUG HYPERSENSITIVITY [None]
  - DYSPNOEA [None]
  - GASTRITIS [None]
  - HEART RATE ABNORMAL [None]
  - HUMERUS FRACTURE [None]
  - INTERVERTEBRAL DISC PROTRUSION [None]
  - MIGRAINE [None]
  - MITRAL VALVE INCOMPETENCE [None]
  - OEDEMA PERIPHERAL [None]
  - PULMONARY HYPERTENSION [None]
  - RADICULOPATHY [None]
  - SLEEP APNOEA SYNDROME [None]
  - TENDONITIS [None]
  - TRICUSPID VALVE INCOMPETENCE [None]
  - ULNA FRACTURE [None]
